FAERS Safety Report 5103759-3 (Version None)
Quarter: 2006Q3

REPORT INFORMATION
  Report Type: 
  Country: None (occurrence: None)
  Receive Date: 20060913
  Receipt Date: 20060815
  Transmission Date: 20061208
  Serious: Yes (Other)
  Sender: FDA-Public Use
  Company Number: US-SANOFI-SYNTHELABO-A03200605159

PATIENT
  Sex: Female

DRUGS (2)
  1. AMBIEN [Suspect]
     Indication: DRUG USE FOR UNKNOWN INDICATION
     Route: 048
     Dates: start: 20060808, end: 20060809
  2. ALCOHOL [Suspect]
     Dosage: UNK
     Route: 048
     Dates: start: 20060808, end: 20060809

REACTIONS (1)
  - IMPAIRED DRIVING ABILITY [None]
